FAERS Safety Report 25593249 (Version 1)
Quarter: 2025Q3

REPORT INFORMATION
  Report Type: Spontaneous
  Country: US (occurrence: US)
  Receive Date: 20250722
  Receipt Date: 20250722
  Transmission Date: 20251021
  Serious: Yes (Other)
  Sender: NEPHRON STERILE COMPOUNDING CENTER, LLC (NSCC), WEST COLUMBIA, SC
  Company Number: US-Nephron Sterile Compounding Center-2180995

PATIENT
  Age: 54 Year

DRUGS (2)
  1. DEL NIDO CARDIOPLEGIA [Suspect]
     Active Substance: LIDOCAINE HYDROCHLORIDE\POTASSIUM CHLORIDE\SODIUM BICARBONATE
     Indication: Mitral valve repair
  2. DEL NIDO CARDIOPLEGIA [Suspect]
     Active Substance: LIDOCAINE HYDROCHLORIDE\POTASSIUM CHLORIDE\SODIUM BICARBONATE

REACTIONS (1)
  - Therapeutic product effect decreased [Recovered/Resolved]

NARRATIVE: CASE EVENT DATE: 20250626
